FAERS Safety Report 17265169 (Version 1)
Quarter: 2020Q1

REPORT INFORMATION
  Report Type: Spontaneous
  Country: FR (occurrence: FR)
  Receive Date: 20200113
  Receipt Date: 20200113
  Transmission Date: 20200409
  Serious: Yes (Hospitalization)
  Sender: FDA-Public Use
  Company Number: FR-BAXTER-2020BAX000808

PATIENT
  Age: 15 Year
  Sex: Female
  Weight: 37.3 kg

DRUGS (5)
  1. DOXIL [Suspect]
     Active Substance: DOXORUBICIN HYDROCHLORIDE
     Indication: OSTEOSARCOMA
     Route: 042
     Dates: start: 20190408
  2. CISPLATINE [Suspect]
     Active Substance: CISPLATIN
     Indication: OSTEOSARCOMA
     Route: 042
     Dates: start: 20190408
  3. ETOPOSIDE. [Concomitant]
     Active Substance: ETOPOSIDE
     Indication: OSTEOSARCOMA
     Route: 042
     Dates: start: 20190102
  4. IFOSFAMIDE. [Concomitant]
     Active Substance: IFOSFAMIDE
     Indication: OSTEOSARCOMA
     Route: 042
     Dates: start: 20190102
  5. METHOTREXATE. [Concomitant]
     Active Substance: METHOTREXATE
     Indication: OSTEOSARCOMA
     Dosage: NON RENSEIGNEE
     Route: 058
     Dates: start: 20181210, end: 201903

REACTIONS (1)
  - Bone marrow failure [Recovered/Resolved]

NARRATIVE: CASE EVENT DATE: 20190527
